FAERS Safety Report 15709973 (Version 1)
Quarter: 2018Q4

REPORT INFORMATION
  Report Type: Spontaneous
  Country: ES (occurrence: ES)
  Receive Date: 20181211
  Receipt Date: 20181211
  Transmission Date: 20190205
  Serious: Yes (Hospitalization)
  Sender: FDA-Public Use
  Company Number: ES-MYLANLABS-2018M1091809

PATIENT
  Age: 65 Year
  Sex: Female

DRUGS (5)
  1. LORAZEPAM. [Interacting]
     Active Substance: LORAZEPAM
     Indication: PRODUCT USED FOR UNKNOWN INDICATION
     Dosage: 10 MILLIGRAM, TOTAL(1 MG 1-1-1 (AUTOLITICO 10 CPS))
     Route: 048
     Dates: start: 20171006, end: 20171006
  2. ROSUVASTATINA                      /01588601/ [Concomitant]
     Active Substance: ROSUVASTATIN
     Dosage: UNK(5 MG CENA)
     Route: 048
     Dates: start: 20140101
  3. INSULINA GLARGINA [Concomitant]
     Dosage: 0-0-1-0
     Route: 058
     Dates: start: 20140101
  4. ZOLPIDEM [Suspect]
     Active Substance: ZOLPIDEM\ZOLPIDEM TARTRATE
     Indication: PRODUCT USED FOR UNKNOWN INDICATION
     Dosage: 50 MILLIGRAM, TOTAL(10 MG 0-0-1 (AUTOLITICO 5 CPS=)
     Route: 048
     Dates: start: 20171006, end: 20171006
  5. OMEPRAZOL                          /00661201/ [Concomitant]
     Active Substance: OMEPRAZOLE
     Dosage: UNK(1 CP DIA)
     Route: 048
     Dates: start: 20140101

REACTIONS (2)
  - Depressed level of consciousness [Recovered/Resolved]
  - Drug interaction [Unknown]

NARRATIVE: CASE EVENT DATE: 20171007
